FAERS Safety Report 8759645 (Version 1)
Quarter: 2012Q4

REPORT INFORMATION
  Report Type: 
  Country: JP (occurrence: JP)
  Receive Date: 20120829
  Receipt Date: 20120829
  Transmission Date: 20130627
  Serious: Yes (Hospitalization)
  Sender: FDA-Public Use
  Company Number: JP-009507513-1106USA00731

PATIENT
  Age: 74 Year
  Sex: Female

DRUGS (10)
  1. BONALON [Suspect]
     Indication: OSTEOPOROSIS
     Dosage: 5 mg, qd
     Route: 048
     Dates: start: 200301, end: 200609
  2. BONALON [Suspect]
     Dosage: 35 mg, qw
     Route: 048
     Dates: start: 200609, end: 201011
  3. ADALAT CR [Concomitant]
     Indication: HYPERTENSION
     Dosage: 40 mg, qd
     Route: 048
     Dates: start: 20060412
  4. LIPITOR [Concomitant]
     Indication: HYPERCHOLESTEROLAEMIA
     Dosage: 10 mg, qd
     Route: 048
     Dates: start: 20060412
  5. NU-LOTAN TABLET 50 [Concomitant]
     Indication: HYPERTENSION
     Dosage: 100 mg, qd
     Route: 048
     Dates: start: 20060412
  6. BAYASPIRIN [Concomitant]
     Indication: THROMBOSIS PROPHYLAXIS
     Dosage: 200 mg, qd
     Route: 048
     Dates: start: 20060412
  7. LUPRAC [Concomitant]
     Indication: OEDEMA
     Dosage: 4 mg, qd
     Route: 048
     Dates: start: 20060412
  8. SELECTOL [Concomitant]
     Indication: HYPERTENSION
     Dosage: 100 mg, qd
     Route: 048
     Dates: start: 20060412
  9. VITAMIN D (UNSPECIFIED) [Concomitant]
     Indication: OSTEOPOROSIS
     Dosage: UNK
     Route: 048
     Dates: start: 199603
  10. MENATETRENONE [Concomitant]
     Indication: OSTEOPOROSIS
     Dosage: UNK
     Route: 048
     Dates: start: 199603

REACTIONS (2)
  - Femur fracture [Recovering/Resolving]
  - Fall [None]
